FAERS Safety Report 5831269-4 (Version None)
Quarter: 2008Q3

REPORT INFORMATION
  Report Type: 
  Country: None (occurrence: None)
  Receive Date: 20080801
  Receipt Date: 20080731
  Transmission Date: 20090109
  Serious: Yes (Hospitalization)
  Sender: FDA-Public Use
  Company Number: US-BOEHRINGER INGELHEIM GMBH, GERMANY-2008-BP-12010RO

PATIENT
  Sex: Female
  Weight: 68 kg

DRUGS (2)
  1. DEXAMETHASONE [Suspect]
     Indication: BRAIN OEDEMA
     Route: 048
     Dates: start: 20080616
  2. SUNITINIB MALATE [Suspect]
     Indication: METASTATIC RENAL CELL CARCINOMA
     Route: 048
     Dates: start: 20080519, end: 20080701

REACTIONS (1)
  - GASTROINTESTINAL HAEMORRHAGE [None]
